FAERS Safety Report 7000306-6 (Version None)
Quarter: 2010Q3

REPORT INFORMATION
  Report Type: 
  Country: None (occurrence: None)
  Receive Date: 20100920
  Receipt Date: 20100624
  Transmission Date: 20110219
  Serious: No
  Sender: FDA-Public Use
  Company Number: US-ASTRAZENECA-2010SE29695

PATIENT
  Sex: Female
  Weight: 77.1 kg

DRUGS (1)
  1. SEROQUEL [Suspect]
     Indication: BLOOD CHOLESTEROL ABNORMAL
     Dosage: 200 MG IN THE AM AND 400 MG IN THE PM
     Route: 048

REACTIONS (1)
  - AMNESIA [None]
